FAERS Safety Report 9167577 (Version 1)
Quarter: 2013Q1

REPORT INFORMATION
  Report Type: Spontaneous
  Country: FR (occurrence: FR)
  Receive Date: 20130318
  Receipt Date: 20130318
  Transmission Date: 20140127
  Serious: Yes (Death, Other)
  Sender: FDA-Public Use
  Company Number: FR-JNJFOC-20130305631

PATIENT
  Age: 39 Year
  Sex: Female

DRUGS (3)
  1. REMICADE [Suspect]
     Indication: CROHN^S DISEASE
     Route: 042
     Dates: start: 20121113, end: 20121113
  2. CORTANCYL [Concomitant]
     Indication: CROHN^S DISEASE
     Route: 065
  3. RIFINAH [Concomitant]
     Route: 048

REACTIONS (9)
  - Hepatitis [Fatal]
  - Hypokalaemia [Unknown]
  - Hyponatraemia [Unknown]
  - Hypochloraemia [Unknown]
  - Hypoproteinaemia [Unknown]
  - Leukopenia [Unknown]
  - Thrombocytopenia [Unknown]
  - Lymphopenia [Unknown]
  - Exposure during pregnancy [Unknown]
